FAERS Safety Report 5777991-X (Version None)
Quarter: 2008Q2

REPORT INFORMATION
  Report Type: 
  Country: None (occurrence: None)
  Receive Date: 20080617
  Receipt Date: 20080604
  Transmission Date: 20081010
  Serious: Yes (Hospitalization)
  Sender: FDA-Public Use
  Company Number: AZAUS200800152

PATIENT
  Age: 72 Year
  Sex: Female
  Weight: 56 kg

DRUGS (6)
  1. VIDAZA [Suspect]
     Indication: MYELODYSPLASTIC SYNDROME
     Dosage: 120 MG/M2, DAILY X 7 DAYS, INTRAVENOUS
     Route: 042
     Dates: start: 20080129, end: 20080206
  2. LISINOPRIL [Concomitant]
  3. FUROSEMIDE [Concomitant]
  4. CYCLOSPORINE [Concomitant]
  5. CARVEDILOL [Concomitant]
  6. PREDNISONE TAB [Concomitant]

REACTIONS (3)
  - BRONCHOPULMONARY ASPERGILLOSIS [None]
  - CONDITION AGGRAVATED [None]
  - PANCYTOPENIA [None]
